FAERS Safety Report 10993406 (Version 1)
Quarter: 2015Q2

REPORT INFORMATION
  Report Type: Spontaneous
  Country: US (occurrence: None)
  Receive Date: 20150406
  Receipt Date: 20150406
  Transmission Date: 20150821
  Serious: Yes (Life-Threatening)
  Sender: FDA-Public Use
  Company Number: None

PATIENT
  Age: 74 Year
  Sex: Female
  Weight: 56 kg

DRUGS (1)
  1. ASPIRIN BAYER [Suspect]
     Active Substance: ASPIRIN
     Indication: INTENTIONAL OVERDOSE
     Dosage: 500 MG PILL ORAL
     Route: 048
     Dates: start: 20150331, end: 20150331

REACTIONS (1)
  - Intentional overdose [None]

NARRATIVE: CASE EVENT DATE: 20150302
